FAERS Safety Report 5293842-4 (Version None)
Quarter: 2007Q2

REPORT INFORMATION
  Report Type: 
  Country: None (occurrence: None)
  Receive Date: 20070411
  Receipt Date: 20070405
  Transmission Date: 20071010
  Serious: Yes (Hospitalization)
  Sender: FDA-Public Use
  Company Number: US-MERCK-0704USA01035

PATIENT
  Age: 81 Year
  Sex: Female

DRUGS (2)
  1. ZOCOR [Suspect]
     Indication: BLOOD CHOLESTEROL
     Route: 048
     Dates: start: 19950101, end: 20070101
  2. BLOOD THINNER (UNSPECIFIED) [Concomitant]
     Indication: ANTICOAGULANT THERAPY
     Route: 048

REACTIONS (1)
  - MUSCLE ATROPHY [None]
